FAERS Safety Report 16460766 (Version 1)
Quarter: 2019Q2

REPORT INFORMATION
  Report Type: Spontaneous
  Country: US (occurrence: US)
  Receive Date: 20190620
  Receipt Date: 20190620
  Transmission Date: 20190711
  Serious: No
  Sender: FDA-Public Use
  Company Number: US-009507513-1906USA006975

PATIENT
  Sex: Female

DRUGS (3)
  1. PROVENTIL [Suspect]
     Active Substance: ALBUTEROL
     Indication: OROPHARYNGEAL DISCOMFORT
  2. PROVENTIL [Suspect]
     Active Substance: ALBUTEROL
     Indication: DYSPNOEA
     Dosage: 2 PUFFS WITH EMPTY LUNGS EVERY 6 HR AS NEEDED
     Dates: start: 20190615, end: 20190615
  3. PROVENTIL [Suspect]
     Active Substance: ALBUTEROL
     Indication: WHEEZING

REACTIONS (2)
  - Product quality issue [Not Recovered/Not Resolved]
  - Product dose omission [Unknown]

NARRATIVE: CASE EVENT DATE: 20190615
